FAERS Safety Report 7929522-3 (Version None)
Quarter: 2011Q4

REPORT INFORMATION
  Report Type: 
  Country: None (occurrence: None)
  Receive Date: 20111121
  Receipt Date: 20111109
  Transmission Date: 20120403
  Serious: Yes (Other)
  Sender: FDA-Public Use
  Company Number: AT-ELI_LILLY_AND_COMPANY-AT201111003320

PATIENT
  Sex: Female
  Weight: 55 kg

DRUGS (8)
  1. METOPROLOL TARTRATE [Concomitant]
     Indication: HYPERTENSION
     Dosage: 475 MG, UNK
  2. PANTOLOC                           /01263202/ [Concomitant]
     Indication: PROPHYLAXIS AGAINST GASTROINTESTINAL ULCER
  3. XEFO [Concomitant]
     Dosage: 8 MG, PRN
  4. MEXALEN [Concomitant]
     Dosage: 500 MG, PRN
  5. DURAGESIC-100 [Concomitant]
     Dosage: 50 UG, UNK
     Route: 062
  6. CANDESARTAN CILEXETIL [Concomitant]
     Indication: HYPERTENSION
     Dosage: 16 MG, UNK
  7. ASPIRIN [Concomitant]
     Indication: THROMBOSIS PROPHYLAXIS
     Dosage: 100 G, UNK
  8. CYMBALTA [Suspect]
     Dosage: UNK, UNKNOWN

REACTIONS (2)
  - PARANOIA [None]
  - HALLUCINATION [None]
